FAERS Safety Report 7335535-5 (Version None)
Quarter: 2011Q1

REPORT INFORMATION
  Report Type: 
  Country: None (occurrence: None)
  Receive Date: 20110301
  Receipt Date: 20110301
  Transmission Date: 20110831
  Serious: No
  Sender: FDA-Public Use
  Company Number: None

PATIENT
  Sex: Female

DRUGS (1)
  1. LORAZEPAM [Suspect]
     Dosage: 1MG TWICE DAILY

REACTIONS (3)
  - NAUSEA [None]
  - PALPITATIONS [None]
  - FEELING HOT [None]
